FAERS Safety Report 5342544-4 (Version None)
Quarter: 2007Q2

REPORT INFORMATION
  Report Type: 
  Country: None (occurrence: None)
  Receive Date: 20070416
  Receipt Date: 20070301
  Transmission Date: 20071010
  Serious: No
  Sender: FDA-Public Use
  Company Number: 2007SP000712

PATIENT
  Age: 52 Year
  Sex: Male
  Weight: 70.3075 kg

DRUGS (12)
  1. LUNESTA [Suspect]
     Indication: INSOMNIA
     Dosage: SEE IMAGE
     Route: 048
     Dates: start: 20060101
  2. LUNESTA [Suspect]
     Indication: INSOMNIA
     Dosage: SEE IMAGE
     Route: 048
     Dates: start: 20060101
  3. KLONOPIN [Concomitant]
  4. XYREM [Concomitant]
  5. SONATA [Concomitant]
  6. ROZEREM [Concomitant]
  7. ZOLPIDEM [Concomitant]
  8. GENOTROPIN [Concomitant]
  9. TESTOSTERONE [Concomitant]
  10. LEXAPRO [Concomitant]
  11. SYNTHROID [Concomitant]
  12. PROVIGIL [Concomitant]

REACTIONS (1)
  - MIDDLE INSOMNIA [None]
